FAERS Safety Report 4734946-1 (Version None)
Quarter: 2005Q3

REPORT INFORMATION
  Report Type: 
  Country: None (occurrence: None)
  Receive Date: 20050721
  Receipt Date: 20050426
  Transmission Date: 20060218
  Serious: No
  Sender: FDA-Public Use
  Company Number: 2005SP000395

PATIENT
  Age: 39 Year
  Sex: Female

DRUGS (3)
  1. LUNESTA [Suspect]
     Indication: INSOMNIA
     Dosage: 2 MG;HS; ORAL
     Route: 048
  2. METHOTREXATE [Concomitant]
  3. LEUCOVORIN [Concomitant]

REACTIONS (1)
  - DYSGEUSIA [None]
